FAERS Safety Report 4391837-6 (Version None)
Quarter: 2004Q3

REPORT INFORMATION
  Report Type: 
  Country: None (occurrence: None)
  Receive Date: 20040701
  Receipt Date: 20040611
  Transmission Date: 20050211
  Serious: Yes (Other)
  Sender: FDA-Public Use
  Company Number: USA040669812

PATIENT
  Age: 77 Year
  Sex: Female
  Weight: 52 kg

DRUGS (4)
  1. FORTEO [Suspect]
     Indication: OSTEOPOROSIS
     Dosage: 20 UG/1 DAY
     Dates: start: 20040315, end: 20040320
  2. SYNTHROID [Concomitant]
  3. ALTACE [Concomitant]
  4. CYTOMEL [Concomitant]

REACTIONS (6)
  - CELLULITIS [None]
  - CONDITION AGGRAVATED [None]
  - MASS [None]
  - PHARMACEUTICAL PRODUCT COMPLAINT [None]
  - PHLEBITIS [None]
  - VARICOSE VEIN [None]
